FAERS Safety Report 7513717-7 (Version None)
Quarter: 2011Q2

REPORT INFORMATION
  Report Type: 
  Country: None (occurrence: None)
  Receive Date: 20110531
  Receipt Date: 20110525
  Transmission Date: 20111010
  Serious: Yes (Congenital Anomaly, Other)
  Sender: FDA-Public Use
  Company Number: GXKR2011DE01831

PATIENT
  Sex: Female
  Weight: 3 kg

DRUGS (5)
  1. FEMIBION [Concomitant]
     Indication: PROPHYLAXIS OF NEURAL TUBE DEFECT
     Dosage: MOTHER DOSE: 0.4 MG, QD
     Route: 064
  2. PAROXETINE HCL [Suspect]
     Dosage: 20 MG/DAY FROM GW 9 UNTIL DELIVERY
     Route: 064
     Dates: end: 20100317
  3. PAROXETINE HCL [Suspect]
     Indication: DEPRESSION
     Dosage: MOTHER DOSE: UNTIL GW 6
     Route: 064
  4. PAROXETINE HCL [Suspect]
     Dosage: 10 MG/DAY FROM GW 7-8
     Route: 064
  5. ANTIHYPERTENSIVE DRUGS [Concomitant]
     Route: 064

REACTIONS (4)
  - HAEMANGIOMA CONGENITAL [None]
  - DRUG EXPOSURE DURING PREGNANCY [None]
  - HYPERBILIRUBINAEMIA NEONATAL [None]
  - PREMATURE BABY [None]
